FAERS Safety Report 24739351 (Version 1)
Quarter: 2024Q4

REPORT INFORMATION
  Report Type: Spontaneous
  Country: FR (occurrence: FR)
  Receive Date: 20241216
  Receipt Date: 20241216
  Transmission Date: 20250114
  Serious: Yes (Life-Threatening, Other)
  Sender: MERCK
  Company Number: None

PATIENT
  Age: 80 Year
  Sex: Male
  Weight: 65 kg

DRUGS (1)
  1. KEYTRUDA [Suspect]
     Active Substance: PEMBROLIZUMAB
     Indication: Oesophageal carcinoma
     Dosage: C16 ON 08/07/2024
     Route: 042
     Dates: start: 202308

REACTIONS (1)
  - Ischaemic stroke [Recovering/Resolving]

NARRATIVE: CASE EVENT DATE: 20240823
